FAERS Safety Report 6617725-X (Version None)
Quarter: 2010Q1

REPORT INFORMATION
  Report Type: 
  Country: None (occurrence: None)
  Receive Date: 20100308
  Receipt Date: 20100223
  Transmission Date: 20100710
  Serious: Yes (Other)
  Sender: FDA-Public Use
  Company Number: PHHY2010TW10216

PATIENT
  Sex: Male

DRUGS (1)
  1. EXFORGE [Suspect]
     Route: 048

REACTIONS (4)
  - DIZZINESS [None]
  - EPISTAXIS [None]
  - FACE OEDEMA [None]
  - OEDEMA PERIPHERAL [None]
